FAERS Safety Report 6361271-8 (Version None)
Quarter: 2009Q3

REPORT INFORMATION
  Report Type: 
  Country: None (occurrence: None)
  Receive Date: 20090918
  Receipt Date: 20090715
  Transmission Date: 20100115
  Serious: Yes (Death)
  Sender: FDA-Public Use
  Company Number: JP-JNJFOC-20090905263

PATIENT

DRUGS (1)
  1. ORTHOCLONE OKT3 [Suspect]
     Indication: RENAL TRANSPLANT
     Route: 042

REACTIONS (1)
  - CYTOMEGALOVIRUS INFECTION [None]
